FAERS Safety Report 7451347-6 (Version None)
Quarter: 2011Q2

REPORT INFORMATION
  Report Type: 
  Country: None (occurrence: None)
  Receive Date: 20110502
  Receipt Date: 20110324
  Transmission Date: 20111010
  Serious: No
  Sender: FDA-Public Use
  Company Number: US-BAYER-201034860NA

PATIENT
  Age: 19 Year
  Sex: Female

DRUGS (3)
  1. YASMIN [Suspect]
  2. YASMIN [Suspect]
  3. YAZ [Suspect]

REACTIONS (1)
  - INJURY [None]
